FAERS Safety Report 5964790-9 (Version None)
Quarter: 2008Q4

REPORT INFORMATION
  Report Type: 
  Country: None (occurrence: None)
  Receive Date: 20081124
  Receipt Date: 20081124
  Transmission Date: 20090506
  Serious: No
  Sender: FDA-Public Use
  Company Number: None

PATIENT
  Age: 58 Year
  Sex: Female
  Weight: 56.6996 kg

DRUGS (1)
  1. GABAPENTIN [Suspect]
     Indication: FIBROMYALGIA
     Dosage: 900MG DAILY PO
     Route: 048
     Dates: start: 20080615, end: 20080620

REACTIONS (1)
  - BINOCULAR EYE MOVEMENT DISORDER [None]
